FAERS Safety Report 17531810 (Version 1)
Quarter: 2020Q1

REPORT INFORMATION
  Report Type: Spontaneous
  Country: BR (occurrence: BR)
  Receive Date: 20200312
  Receipt Date: 20200312
  Transmission Date: 20200409
  Serious: Yes (Other)
  Sender: FDA-Public Use
  Company Number: BR-SA-2019SA237270

PATIENT
  Age: 56 Year
  Sex: Female
  Weight: 76 kg

DRUGS (1)
  1. FABRAZYME [Suspect]
     Active Substance: AGALSIDASE BETA
     Indication: FABRY^S DISEASE
     Dosage: 4 DOSES, 70 ML, Q15D
     Route: 041
     Dates: start: 201901

REACTIONS (10)
  - Fatigue [Unknown]
  - Weight increased [Unknown]
  - Carditis [Unknown]
  - Renal pain [Unknown]
  - Malaise [Unknown]
  - Cardiac disorder [Unknown]
  - Unevaluable event [Unknown]
  - Pain in extremity [Unknown]
  - Thyroid disorder [Unknown]
  - Myocardial infarction [Unknown]

NARRATIVE: CASE EVENT DATE: 2019
